FAERS Safety Report 5047040-X (Version None)
Quarter: 2006Q3

REPORT INFORMATION
  Report Type: 
  Country: None (occurrence: None)
  Receive Date: 20060703
  Receipt Date: 20060623
  Transmission Date: 20061208
  Serious: Yes (Hospitalization)
  Sender: FDA-Public Use
  Company Number: 2005143692

PATIENT
  Sex: Female
  Weight: 92 kg

DRUGS (4)
  1. TOLTERODINE TARTRATE [Suspect]
     Indication: NEUROGENIC BLADDER
     Dosage: 4 MG (2 MG, 2 IN 1 D), ORAL
     Route: 048
     Dates: end: 20050926
  2. MUSARIL (TETRAZEPAM) [Concomitant]
  3. METFORMIN [Concomitant]
  4. BACLOFEN [Concomitant]

REACTIONS (2)
  - URINARY RETENTION [None]
  - URINARY TRACT INFECTION [None]
